FAERS Safety Report 23440447 (Version 1)
Quarter: 2024Q1

REPORT INFORMATION
  Report Type: Report from Study
  Country: US (occurrence: US)
  Receive Date: 20240125
  Receipt Date: 20240125
  Transmission Date: 20240410
  Serious: Yes (Other)
  Sender: FDA-Public Use
  Company Number: US-ABBVIE-5599281

PATIENT
  Sex: Female

DRUGS (1)
  1. HUMIRA [Suspect]
     Active Substance: ADALIMUMAB
     Indication: Crohn^s disease
     Route: 058

REACTIONS (5)
  - Visual impairment [Not Recovered/Not Resolved]
  - Eye haemorrhage [Unknown]
  - Influenza [Unknown]
  - COVID-19 [Not Recovered/Not Resolved]
  - Viral infection [Not Recovered/Not Resolved]
